FAERS Safety Report 13860678 (Version 1)
Quarter: 2017Q3

REPORT INFORMATION
  Report Type: Spontaneous
  Country: CA (occurrence: CA)
  Receive Date: 20170811
  Receipt Date: 20170811
  Transmission Date: 20171127
  Serious: Yes (Death)
  Sender: FDA-Public Use
  Company Number: CA-TEVA-394802USA

PATIENT
  Age: 33 Year
  Sex: Male

DRUGS (2)
  1. DIMENHYDRINATE. [Suspect]
     Active Substance: DIMENHYDRINATE
     Dosage: 50 MILLIGRAM DAILY;
     Route: 065
  2. RATIO-OXYCOCET [Suspect]
     Active Substance: ACETAMINOPHEN\OXYCODONE HYDROCHLORIDE
     Dosage: 975 MILLIGRAM DAILY;
     Route: 065

REACTIONS (1)
  - Toxicity to various agents [Fatal]
